FAERS Safety Report 9588634 (Version 1)
Quarter: 2013Q4

REPORT INFORMATION
  Report Type: Spontaneous
  Country: US (occurrence: US)
  Receive Date: 20131003
  Receipt Date: 20131003
  Transmission Date: 20140711
  Serious: No
  Sender: FDA-Public Use
  Company Number: US-AMGEN-USASP2012065471

PATIENT
  Age: 49 Year
  Sex: Male
  Weight: 181.41 kg

DRUGS (4)
  1. ENBREL [Suspect]
     Indication: PSORIASIS
     Dosage: 50 MG, 2 TIMES/WK
     Route: 058
  2. ENBREL [Suspect]
     Indication: PSORIATIC ARTHROPATHY
  3. CLARITIN                           /00917501/ [Concomitant]
     Dosage: 10 MG, UNK
  4. ALEVE [Concomitant]
     Dosage: 220 MG, UNK

REACTIONS (3)
  - Poor peripheral circulation [Unknown]
  - Skin discolouration [Unknown]
  - Staphylococcal infection [Unknown]
